FAERS Safety Report 22090058 (Version 1)
Quarter: 2023Q1

REPORT INFORMATION
  Report Type: Spontaneous
  Country: NP (occurrence: None)
  Receive Date: 20230313
  Receipt Date: 20230313
  Transmission Date: 20230417
  Serious: Yes (Other)
  Sender: FDA-Public Use
  Company Number: None

PATIENT
  Age: 45 Year
  Sex: Female

DRUGS (2)
  1. HYDROXYCHLOROQUINE SULFATE [Suspect]
     Active Substance: HYDROXYCHLOROQUINE SULFATE
     Indication: Pain in extremity
     Route: 065
  2. METHOTREXATE [Suspect]
     Active Substance: METHOTREXATE
     Indication: Pain in extremity
     Route: 065

REACTIONS (14)
  - Cutaneous sporotrichosis [None]
  - Mycobacterial infection [None]
  - Skin mass [None]
  - Pain [None]
  - Peripheral swelling [None]
  - Aspartate aminotransferase increased [None]
  - Alanine aminotransferase increased [None]
  - Vitamin D decreased [None]
  - Streptococcal infection [None]
  - Sporotrichosis [None]
  - Atypical mycobacterial infection [None]
  - Discharge [None]
  - Tenderness [None]
  - Disease progression [None]
